FAERS Safety Report 6998152-2 (Version None)
Quarter: 2010Q3

REPORT INFORMATION
  Report Type: 
  Country: None (occurrence: None)
  Receive Date: 20100920
  Receipt Date: 20100419
  Transmission Date: 20110219
  Serious: Yes (Hospitalization, Other)
  Sender: FDA-Public Use
  Company Number: US-ASTRAZENECA-2008UW07398

PATIENT
  Age: 17976 Day
  Sex: Male
  Weight: 96.2 kg

DRUGS (10)
  1. SEROQUEL [Suspect]
     Indication: BIPOLAR DISORDER
     Dosage: 400 MG TO 1200 MG
     Route: 048
     Dates: start: 20040101, end: 20071123
  2. SEROQUEL [Suspect]
     Dosage: 100-300 MG
     Route: 048
     Dates: start: 20050114
  3. SEROQUEL [Suspect]
     Route: 048
     Dates: start: 20061102
  4. LEXAPRO [Concomitant]
     Dates: start: 20040929
  5. RISPERDAL [Concomitant]
     Indication: BIPOLAR DISORDER
     Dates: start: 20030101
  6. RISPERDAL [Concomitant]
     Dosage: 2 MG,4 MG DISPENSED
     Dates: start: 20040929
  7. MIRAPEX [Concomitant]
     Dates: start: 20030101
  8. MIRAPEX [Concomitant]
     Dates: start: 20041020
  9. TRAZODONE HCL [Concomitant]
     Indication: POST CONCUSSION SYNDROME
     Dates: start: 20060101
  10. TRAZODONE HCL [Concomitant]
     Dates: start: 20060823

REACTIONS (6)
  - COMA [None]
  - DIABETIC KETOACIDOSIS [None]
  - HYPERGLYCAEMIA [None]
  - HYPERTENSION [None]
  - NEUROLEPTIC MALIGNANT SYNDROME [None]
  - TYPE 2 DIABETES MELLITUS [None]
